FAERS Safety Report 5541802-8 (Version None)
Quarter: 2007Q4

REPORT INFORMATION
  Report Type: 
  Country: None (occurrence: None)
  Receive Date: 20071210
  Receipt Date: 20071203
  Transmission Date: 20080405
  Serious: Yes (Death, Life-Threatening, Hospitalization, Other)
  Sender: FDA-Public Use
  Company Number: GB-JNJFOC-20071104058

PATIENT
  Age: 33 Year
  Sex: Male

DRUGS (1)
  1. CAELYX [Suspect]
     Indication: HEPATIC NEOPLASM MALIGNANT
     Route: 013

REACTIONS (4)
  - ENCEPHALOPATHY [None]
  - HEPATIC FAILURE [None]
  - RENAL FAILURE [None]
  - TUMOUR LYSIS SYNDROME [None]
